FAERS Safety Report 4588562-5 (Version None)
Quarter: 2005Q1

REPORT INFORMATION
  Report Type: 
  Country: None (occurrence: None)
  Receive Date: 20050215
  Receipt Date: 20050215
  Transmission Date: 20050727
  Serious: Yes (Life-Threatening, Other)
  Sender: FDA-Public Use
  Company Number: None

PATIENT
  Age: 57 Year
  Sex: Female
  Weight: 66.6788 kg

DRUGS (4)
  1. CLINORIL [Suspect]
     Indication: ARTHRITIS
     Dosage: 1 TAB TWICE DAILY
  2. CLINORIL [Suspect]
     Indication: MYALGIA
     Dosage: 1 TAB TWICE DAILY
  3. CLINORIL [Suspect]
     Indication: PAIN
     Dosage: 1 TAB TWICE DAILY
  4. PREDNISONE [Concomitant]

REACTIONS (8)
  - ANOREXIA [None]
  - CHROMATURIA [None]
  - DRUG HYPERSENSITIVITY [None]
  - DYSGEUSIA [None]
  - OCULAR ICTERUS [None]
  - PHOTOPHOBIA [None]
  - SKIN DISCOLOURATION [None]
  - URTICARIA [None]
